FAERS Safety Report 6404024-4 (Version None)
Quarter: 2009Q4

REPORT INFORMATION
  Report Type: 
  Country: None (occurrence: None)
  Receive Date: 20091016
  Receipt Date: 20090811
  Transmission Date: 20100525
  Serious: No
  Sender: FDA-Public Use
  Company Number: US-ALEXION-A200900649

PATIENT
  Sex: Male

DRUGS (4)
  1. SOLIRIS [Suspect]
     Indication: PAROXYSMAL NOCTURNAL HAEMOGLOBINURIA
     Dosage: 600 MG, WEEKLY X 4
     Route: 042
     Dates: start: 20080117
  2. SOLIRIS [Suspect]
     Dosage: 900 MG, Q 2 WEEKS
     Route: 042
     Dates: start: 20080215
  3. COUMADIN [Concomitant]
     Indication: PAROXYSMAL NOCTURNAL HAEMOGLOBINURIA
     Dosage: 5 MG, QD
     Route: 048
  4. OXYCODONE [Concomitant]
     Indication: PAIN
     Dosage: 5 MG, 1-2, PRN
     Route: 048

REACTIONS (2)
  - ELECTROCARDIOGRAM ABNORMAL [None]
  - FATIGUE [None]
